FAERS Safety Report 23311301 (Version 1)
Quarter: 2023Q4

REPORT INFORMATION
  Report Type: Spontaneous
  Country: HU (occurrence: HU)
  Receive Date: 20231219
  Receipt Date: 20231219
  Transmission Date: 20240110
  Serious: Yes (Other)
  Sender: FDA-Public Use
  Company Number: HU-ALKEM LABORATORIES LIMITED-HU-ALKEM-2023-12448

PATIENT
  Age: 18 Year
  Sex: Female

DRUGS (2)
  1. EVEROLIMUS [Suspect]
     Active Substance: EVEROLIMUS
     Indication: Epilepsy
     Dosage: 10 MG/DAY (VOTUBIA)
     Route: 065
  2. EVEROLIMUS [Suspect]
     Active Substance: EVEROLIMUS
     Dosage: 5 MG/DAY (AFTER 4 WEEKS) (RESUMED)
     Route: 065

REACTIONS (2)
  - Pneumonia [Recovered/Resolved]
  - Off label use [Unknown]
